FAERS Safety Report 16712499 (Version 1)
Quarter: 2019Q3

REPORT INFORMATION
  Report Type: Report from Study
  Country: US (occurrence: US)
  Receive Date: 20190816
  Receipt Date: 20190816
  Transmission Date: 20191004
  Serious: Yes (Hospitalization)
  Sender: FDA-Public Use
  Company Number: US-EXELIXIS-CABO-19022704

PATIENT
  Age: 59 Year
  Sex: Male
  Weight: 84.4 kg

DRUGS (16)
  1. CABOMETYX [Suspect]
     Active Substance: CABOZANTINIB S-MALATE
     Indication: HEPATIC CANCER
     Dosage: 60 MG, QD
     Route: 048
     Dates: start: 20190624, end: 20190710
  2. BIOTENE DRY MOUTH [Concomitant]
  3. PRILOSEC [Concomitant]
     Active Substance: OMEPRAZOLE MAGNESIUM
  4. SENOKOT [Concomitant]
     Active Substance: SENNOSIDES
  5. OSCAL D [Concomitant]
     Active Substance: CALCIUM CARBONATE\CHOLECALCIFEROL
  6. CABOMETYX [Suspect]
     Active Substance: CABOZANTINIB S-MALATE
     Dosage: 40 MG, QD (PM W/O FOOD)
     Dates: start: 20190718, end: 20190726
  7. LOPRESSOR [Concomitant]
     Active Substance: METOPROLOL TARTRATE
  8. MS CONTIN [Concomitant]
     Active Substance: MORPHINE SULFATE
  9. BARACLUDE [Concomitant]
     Active Substance: ENTECAVIR
     Indication: HEPATITIS B
  10. REMERON [Concomitant]
     Active Substance: MIRTAZAPINE
  11. GEODON [Concomitant]
     Active Substance: ZIPRASIDONE HYDROCHLORIDE\ZIPRASIDONE MESYLATE
  12. XALATAN [Concomitant]
     Active Substance: LATANOPROST
     Indication: OPEN ANGLE GLAUCOMA
  13. MS IR [Concomitant]
     Active Substance: MORPHINE SULFATE
  14. ZOLOFT [Concomitant]
     Active Substance: SERTRALINE HYDROCHLORIDE
  15. COLACE [Concomitant]
     Active Substance: DOCUSATE SODIUM
  16. ZOMETA [Concomitant]
     Active Substance: ZOLEDRONIC ACID

REACTIONS (13)
  - Chest pain [Unknown]
  - Fatigue [Unknown]
  - Blood pressure increased [Recovered/Resolved]
  - Nausea [Recovered/Resolved]
  - Splenic vein thrombosis [Unknown]
  - Malignant neoplasm progression [Unknown]
  - Diarrhoea [Recovering/Resolving]
  - Taste disorder [Unknown]
  - Leukocytosis [Recovering/Resolving]
  - Hypophagia [Recovered/Resolved]
  - Abdominal pain [Recovering/Resolving]
  - Vomiting [Unknown]
  - Decreased appetite [Unknown]

NARRATIVE: CASE EVENT DATE: 20190711
